FAERS Safety Report 9098366 (Version 1)
Quarter: 2013Q1

REPORT INFORMATION
  Report Type: Spontaneous
  Country: US (occurrence: US)
  Receive Date: 20130213
  Receipt Date: 20130213
  Transmission Date: 20140127
  Serious: Yes (Hospitalization, Other)
  Sender: FDA-Public Use
  Company Number: CHPA2013US002923

PATIENT
  Sex: Male

DRUGS (1)
  1. TRIAMINIC [Suspect]
     Dosage: UNK, ONCE/SINGLE
     Route: 048
     Dates: start: 201111, end: 201111

REACTIONS (3)
  - Vomiting [Unknown]
  - Accidental exposure to product by child [Unknown]
  - Failure of child resistant mechanism for pharmaceutical product [None]
